FAERS Safety Report 9084363 (Version 1)
Quarter: 2013Q1

REPORT INFORMATION
  Report Type: Spontaneous
  Country: US (occurrence: US)
  Receive Date: 20130131
  Receipt Date: 20130131
  Transmission Date: 20140127
  Serious: No
  Sender: FDA-Public Use
  Company Number: US-PFIZER INC-2013032680

PATIENT
  Sex: Female

DRUGS (1)
  1. VENLAFAXINE HYDROCHLORIDE [Suspect]
     Indication: GENERALISED ANXIETY DISORDER
     Dosage: UNK, 1X/DAY
     Route: 048

REACTIONS (1)
  - Heart rate increased [Not Recovered/Not Resolved]
